FAERS Safety Report 14477295 (Version 1)
Quarter: 2018Q1

REPORT INFORMATION
  Report Type: Report from Study
  Country: US (occurrence: US)
  Receive Date: 20180201
  Receipt Date: 20180201
  Transmission Date: 20180509
  Serious: No
  Sender: FDA-Public Use
  Company Number: US-EXELIXIS-CABO-17011038

PATIENT
  Age: 80 Year
  Sex: Male

DRUGS (9)
  1. ASPIRIN. [Concomitant]
     Active Substance: ASPIRIN
  2. STOOL SOFTENER (DOCUSATE) [Concomitant]
     Active Substance: DOCUSATE
  3. GLIPIZIDE. [Concomitant]
     Active Substance: GLIPIZIDE
  4. FENTANYL. [Concomitant]
     Active Substance: FENTANYL
  5. PROBIOTIC [Concomitant]
     Active Substance: PROBIOTICS NOS
  6. ATORVASTATIN [Concomitant]
     Active Substance: ATORVASTATIN
  7. CABOMETYX [Suspect]
     Active Substance: CABOZANTINIB S-MALATE
     Indication: RENAL CANCER
     Dosage: 20 MG, QD
     Route: 048
     Dates: start: 201611, end: 201709
  8. OMEPRAZOLE. [Concomitant]
     Active Substance: OMEPRAZOLE
  9. JANUVIA [Concomitant]
     Active Substance: SITAGLIPTIN PHOSPHATE

REACTIONS (3)
  - Upper limb fracture [Unknown]
  - Fall [Unknown]
  - Metastases to bone [Unknown]

NARRATIVE: CASE EVENT DATE: 20170927
